FAERS Safety Report 7987125-9 (Version None)
Quarter: 2011Q4

REPORT INFORMATION
  Report Type: 
  Country: None (occurrence: None)
  Receive Date: 20111216
  Receipt Date: 20110318
  Transmission Date: 20120403
  Serious: No
  Sender: FDA-Public Use
  Company Number: US-BRISTOL-MYERS SQUIBB COMPANY-15619307

PATIENT
  Age: 10 Year
  Sex: Female
  Weight: 82 kg

DRUGS (4)
  1. ABILIFY [Suspect]
     Indication: BIPOLAR DISORDER
     Dosage: 1 DF:2.5 MG TABS/DAY DISCONTINUED AND RESTARTED IN 2010 DOSE REDUCED IN MIDFEB2011
     Dates: start: 20090101, end: 20110301
  2. ZOLOFT [Concomitant]
     Dates: start: 20100401, end: 20100901
  3. LITHIUM [Concomitant]
     Dates: start: 20100101
  4. LAMICTAL [Suspect]
     Indication: BIPOLAR DISORDER
     Dosage: RECEIVED FOR 2 YRS  DISCONTINUED IN 2010
     Dates: start: 20090101, end: 20100101

REACTIONS (2)
  - BLOOD GLUCOSE INCREASED [None]
  - TREMOR [None]
